FAERS Safety Report 6421882-8 (Version None)
Quarter: 2009Q4

REPORT INFORMATION
  Report Type: 
  Country: None (occurrence: None)
  Receive Date: 20091029
  Receipt Date: 20091029
  Transmission Date: 20100525
  Serious: Yes (Life-Threatening)
  Sender: FDA-Public Use
  Company Number: None

PATIENT
  Age: 46 Year
  Sex: Female
  Weight: 88.4514 kg

DRUGS (2)
  1. METOLAZONE [Suspect]
     Indication: HYPERTENSION
     Dosage: ONE DAILY BUCCAL
     Route: 002
  2. METOLAZONE [Suspect]
     Indication: OEDEMA
     Dosage: ONE DAILY BUCCAL
     Route: 002

REACTIONS (8)
  - ARTHROPATHY [None]
  - ASTHENIA [None]
  - BLOOD POTASSIUM DECREASED [None]
  - FATIGUE [None]
  - FEELING ABNORMAL [None]
  - FIBROMYALGIA [None]
  - HEPATIC ENZYME INCREASED [None]
  - PAIN [None]
